FAERS Safety Report 23742820 (Version 1)
Quarter: 2024Q2

REPORT INFORMATION
  Report Type: Spontaneous
  Country: ES (occurrence: ES)
  Receive Date: 20240415
  Receipt Date: 20240415
  Transmission Date: 20240716
  Serious: Yes (Hospitalization, Disabling)
  Sender: FDA-Public Use
  Company Number: None

PATIENT
  Age: 48 Year
  Sex: Male
  Weight: 89 kg

DRUGS (6)
  1. OXALIPLATIN [Suspect]
     Active Substance: OXALIPLATIN
     Indication: Oesophageal neoplasm
     Route: 042
     Dates: start: 20231107
  2. OPDIVO [Suspect]
     Active Substance: NIVOLUMAB
     Indication: Oesophageal neoplasm
     Dosage: FORM OF ADMIN.- CONCENTRATE FOR SOLUTION FOR INFUSION
     Route: 042
     Dates: start: 20231205, end: 20240209
  3. FLUOROURACIL [Suspect]
     Active Substance: FLUOROURACIL
     Indication: Oesophageal neoplasm
     Route: 042
     Dates: start: 20231107, end: 20240209
  4. OMEPRAZOLE KERN PHARMA 20 mg HARD CAPSULES GASTRORRESISTANT EFG , 28 c [Concomitant]
     Indication: Product used for unknown indication
     Dosage: FORM OF ADMIN.- GASTRO-RESISTANT CAPSULE, HARD
     Route: 048
     Dates: start: 20240110
  5. FOLINIC ACID (1587A) [Concomitant]
     Indication: Oesophageal neoplasm
     Route: 042
     Dates: start: 20231107, end: 20240209
  6. ZOLPIDEM CINFA 10 mg EFG FILM-COATED TABLETS, 30 tablets [Concomitant]
     Indication: Product used for unknown indication
     Dosage: FORM OF ADMIN.- FILM-COATED TABLET
     Route: 048
     Dates: start: 20240125

REACTIONS (4)
  - Peripheral artery thrombosis [Recovered/Resolved with Sequelae]
  - Necrosis [Recovered/Resolved with Sequelae]
  - Embolism [Recovered/Resolved with Sequelae]
  - Foot amputation [Recovered/Resolved with Sequelae]

NARRATIVE: CASE EVENT DATE: 20240214
